FAERS Safety Report 9358872 (Version 2)
Quarter: 2013Q4

REPORT INFORMATION
  Report Type: Spontaneous
  Country: US (occurrence: US)
  Receive Date: 20130620
  Receipt Date: 20131121
  Transmission Date: 20140711
  Serious: Yes (Hospitalization)
  Sender: FDA-Public Use
  Company Number: US-B.I. PHARMACEUTICALS,INC./RIDGEFIELD-2013-BI-17224BP

PATIENT
  Sex: Female

DRUGS (16)
  1. PRADAXA [Suspect]
     Indication: ATRIAL FIBRILLATION
     Dosage: 150 MG
     Dates: start: 20120127, end: 20120406
  2. MIRALAX [Concomitant]
     Dosage: 17 MG
     Route: 048
  3. COLACE [Concomitant]
     Dosage: 100 MG
     Route: 048
  4. SERAX [Concomitant]
     Route: 048
  5. ZESTRIL [Concomitant]
     Dosage: 40 MG
     Route: 048
  6. PROTONIX [Concomitant]
     Dosage: 40 MG
     Route: 048
  7. ZOVIRAX [Concomitant]
     Dosage: 800 MG
     Route: 048
  8. NORVASC [Concomitant]
     Dosage: 5 MG
     Route: 048
  9. APRESOLINE [Concomitant]
     Dosage: 150 MG
     Route: 048
  10. CATAPRES [Concomitant]
     Dosage: 0.6 MG
     Route: 048
  11. ISORDIL [Concomitant]
     Dosage: 60 MG
     Route: 048
  12. ASPIRIN [Concomitant]
     Dosage: 81 MG
     Route: 048
  13. SYNTHROID [Concomitant]
     Dosage: 75 MCG
     Route: 048
  14. ZOCOR [Concomitant]
     Route: 048
  15. TENORMIN [Concomitant]
     Dosage: 100 MG
     Route: 048
  16. COUMADIN [Concomitant]
     Dates: start: 20120406

REACTIONS (3)
  - Gastrointestinal haemorrhage [Unknown]
  - Anaemia [Unknown]
  - Coagulopathy [Unknown]
